FAERS Safety Report 15368321 (Version 2)
Quarter: 2018Q3

REPORT INFORMATION
  Report Type: Spontaneous
  Country: US (occurrence: US)
  Receive Date: 20180910
  Receipt Date: 20180928
  Transmission Date: 20181010
  Serious: No
  Sender: FDA-Public Use
  Company Number: US-JNJFOC-20180838570

PATIENT
  Sex: Female

DRUGS (3)
  1. CLOBETASONE [Concomitant]
     Active Substance: CLOBETASONE
     Route: 065
  2. RHOFADE [Concomitant]
     Active Substance: OXYMETAZOLINE HYDROCHLORIDE
     Route: 065
  3. TREMFYA [Suspect]
     Active Substance: GUSELKUMAB
     Indication: PSORIASIS
     Route: 058
     Dates: start: 2018

REACTIONS (3)
  - Psoriasis [Unknown]
  - Injection site erythema [Unknown]
  - Injection site pruritus [Unknown]
